FAERS Safety Report 24601610 (Version 1)
Quarter: 2024Q4

REPORT INFORMATION
  Report Type: Spontaneous
  Country: US (occurrence: US)
  Receive Date: 20241111
  Receipt Date: 20241111
  Transmission Date: 20250115
  Serious: Yes (Other)
  Sender: TEVA
  Company Number: US-TEVA-VS-3261393

PATIENT
  Age: 72 Year
  Sex: Female

DRUGS (1)
  1. LETROZOLE [Suspect]
     Active Substance: LETROZOLE
     Indication: Breast cancer
     Route: 065
     Dates: end: 20241028

REACTIONS (5)
  - Ehlers-Danlos syndrome [Unknown]
  - Immune system disorder [Unknown]
  - Oedema peripheral [Unknown]
  - Bone pain [Unknown]
  - Arthralgia [Unknown]
